FAERS Safety Report 5878216-7 (Version None)
Quarter: 2008Q3

REPORT INFORMATION
  Report Type: 
  Country: None (occurrence: None)
  Receive Date: 20080909
  Receipt Date: 20080909
  Transmission Date: 20090109
  Serious: Yes (Life-Threatening, Hospitalization, Disabling)
  Sender: FDA-Public Use
  Company Number: None

PATIENT
  Age: 56 Year
  Sex: Female
  Weight: 67.1324 kg

DRUGS (1)
  1. RAPTIVA [Suspect]
     Indication: PSORIASIS
     Dosage: 125 MG VIAL WKLY SUBCUTANEOUS
     Route: 058
     Dates: start: 20080501, end: 20080615

REACTIONS (13)
  - ALOPECIA [None]
  - CELLULITIS [None]
  - CHILLS [None]
  - CONDITION AGGRAVATED [None]
  - IMMUNE SYSTEM DISORDER [None]
  - OEDEMA PERIPHERAL [None]
  - ONYCHOMADESIS [None]
  - PSORIASIS [None]
  - RASH [None]
  - SEPSIS [None]
  - SKIN EXFOLIATION [None]
  - SKIN LESION [None]
  - WHITE BLOOD CELL COUNT INCREASED [None]
